FAERS Safety Report 7753587-5 (Version None)
Quarter: 2011Q3

REPORT INFORMATION
  Report Type: 
  Country: None (occurrence: None)
  Receive Date: 20110915
  Receipt Date: 20110907
  Transmission Date: 20111222
  Serious: Yes (Hospitalization, Other)
  Sender: FDA-Public Use
  Company Number: US-GLAXOSMITHKLINE-A0915355A

PATIENT
  Age: 27 Year
  Sex: Female

DRUGS (7)
  1. PROMACTA [Suspect]
     Indication: IDIOPATHIC THROMBOCYTOPENIC PURPURA
     Dates: start: 20100901
  2. CORTICOSTEROIDS [Concomitant]
  3. RITUXAN [Concomitant]
  4. ROMIPLOSTIM [Concomitant]
  5. IMMUNE GLOBULIN INTRAVENOUS (HUMAN) [Suspect]
     Indication: IDIOPATHIC THROMBOCYTOPENIC PURPURA
  6. STEROIDS [Suspect]
     Indication: IDIOPATHIC THROMBOCYTOPENIC PURPURA
  7. PREDNISONE [Concomitant]

REACTIONS (8)
  - NAUSEA [None]
  - DIPLOPIA [None]
  - CEREBROVASCULAR ACCIDENT [None]
  - TRANSIENT ISCHAEMIC ATTACK [None]
  - NYSTAGMUS [None]
  - VOMITING [None]
  - HYPERCOAGULATION [None]
  - HEADACHE [None]
